FAERS Safety Report 7280222-5 (Version None)
Quarter: 2011Q1

REPORT INFORMATION
  Report Type: 
  Country: None (occurrence: None)
  Receive Date: 20110208
  Receipt Date: 20110201
  Transmission Date: 20110831
  Serious: Yes (Other)
  Sender: FDA-Public Use
  Company Number: AR-AMGEN-ARGSP2011003601

PATIENT
  Age: 61 Year
  Sex: Female
  Weight: 76 kg

DRUGS (5)
  1. ENBREL [Suspect]
     Dosage: 25 MG, WEEKLY
     Route: 058
     Dates: start: 20110101
  2. ENBREL [Suspect]
     Indication: RHEUMATOID ARTHRITIS
     Dosage: 25 MG, WEEKLY
     Route: 058
     Dates: start: 20040816, end: 20100701
  3. VENORUTON                          /00256001/ [Concomitant]
     Indication: VARICOSE VEIN
     Dosage: UNK
  4. LEVOTHYROXINE SODIUM [Concomitant]
     Indication: HYPERTHYROIDISM
     Dosage: 50 UG, 1X/DAY
     Route: 048
  5. PENICILLIN [Concomitant]
     Indication: ULCER
     Dosage: UNK

REACTIONS (3)
  - DRY MOUTH [None]
  - ERYSIPELAS [None]
  - DRY EYE [None]
